FAERS Safety Report 9053924 (Version 1)
Quarter: 2013Q1

REPORT INFORMATION
  Report Type: Spontaneous
  Country: US (occurrence: None)
  Receive Date: 20130201
  Receipt Date: 20130201
  Transmission Date: 20140127
  Serious: No
  Sender: FDA-Public Use
  Company Number: None

PATIENT
  Age: 73 Year
  Sex: Female
  Weight: 76.2 kg

DRUGS (1)
  1. AZITHROMYCIN 250 MG TAB. SANDOZ [Suspect]
     Indication: PNEUMONIA
     Route: 048
     Dates: start: 20130108, end: 20130118

REACTIONS (3)
  - Skin odour abnormal [None]
  - Vaginal infection [None]
  - Vision blurred [None]
